FAERS Safety Report 5019482-X (Version None)
Quarter: 2006Q2

REPORT INFORMATION
  Report Type: 
  Country: None (occurrence: None)
  Receive Date: 20060505
  Receipt Date: 20060505
  Transmission Date: 20061013
  Serious: Yes (Hospitalization)
  Sender: FDA-Public Use
  Company Number: None

PATIENT
  Age: 72 Year
  Sex: Female
  Weight: 85.3 kg

DRUGS (2)
  1. AVASTIN [Suspect]
     Dosage: 1000MG/M^2
     Dates: start: 20060227, end: 20060501
  2. GEMCITABINE [Suspect]
     Dosage: 10MG/KG
     Dates: start: 20060227, end: 20060508

REACTIONS (6)
  - ACUTE SINUSITIS [None]
  - DEHYDRATION [None]
  - DIZZINESS [None]
  - GASTRIC ULCER [None]
  - HAEMOGLOBIN DECREASED [None]
  - HYPOTENSION [None]
